FAERS Safety Report 19426459 (Version 1)
Quarter: 2021Q2

REPORT INFORMATION
  Report Type: Spontaneous
  Country: IE (occurrence: IE)
  Receive Date: 20210617
  Receipt Date: 20210617
  Transmission Date: 20210717
  Serious: Yes (Other)
  Sender: FDA-Public Use
  Company Number: IE-AMGEN-IRLSP2021092815

PATIENT
  Sex: Male

DRUGS (2)
  1. BUPLEX [Concomitant]
     Active Substance: IBUPROFEN
     Dosage: 400?800 MGS ONE TO TWO TABLETS TO BE TAKEN DAILY WHEN REQUIRED
     Dates: start: 20210401, end: 20210410
  2. AMGEVITA [Suspect]
     Active Substance: ADALIMUMAB
     Indication: PRODUCT USED FOR UNKNOWN INDICATION
     Dosage: EXPIRY DATE: 31/05/2022PATIENT ON MAINTENANCE DOSE FOR MORE THAN 12 WEEKS
     Route: 058
     Dates: start: 20201123, end: 20210514

REACTIONS (4)
  - Lower respiratory tract infection [Recovered/Resolved]
  - Arthralgia [Recovered/Resolved]
  - Contusion [Recovered/Resolved]
  - Myalgia [Recovered/Resolved]

NARRATIVE: CASE EVENT DATE: 20210418
